FAERS Safety Report 16308885 (Version 6)
Quarter: 2025Q4

REPORT INFORMATION
  Report Type: Report from Study
  Country: EU (occurrence: EU)
  Receive Date: 20190514
  Receipt Date: 20251226
  Transmission Date: 20260118
  Serious: Yes (Death, Life-Threatening, Hospitalization, Other)
  Sender: AUROBINDO
  Company Number: EU-AUROBINDO-AUR-APL-2019-026352

PATIENT
  Age: 75 Year
  Sex: Male

DRUGS (7)
  1. ESOMEPRAZOLE [Interacting]
     Active Substance: ESOMEPRAZOLE
     Indication: Gastrooesophageal reflux disease
     Dosage: 40 MILLIGRAM, ONCE A DAY
     Route: 065
  2. PIRFENIDONE [Interacting]
     Active Substance: PIRFENIDONE
     Indication: Idiopathic pulmonary fibrosis
     Dosage: 267 MILLIGRAM, 3 TIMES A DAY
     Route: 065
  3. PIRFENIDONE [Interacting]
     Active Substance: PIRFENIDONE
     Dosage: 534 MILLIGRAM, 3 TIMES A DAY
  4. PIRFENIDONE [Interacting]
     Active Substance: PIRFENIDONE
     Dosage: 801 MILLIGRAM, 3 TIMES A DAY
     Route: 065
  5. PIRFENIDONE [Interacting]
     Active Substance: PIRFENIDONE
     Dosage: 1602 MILLIGRAM, ONCE A DAY
     Route: 065
  6. PIRFENIDONE [Interacting]
     Active Substance: PIRFENIDONE
     Dosage: 2403 MILLIGRAM, ONCE A DAY
     Route: 065
  7. PIRFENIDONE [Interacting]
     Active Substance: PIRFENIDONE
     Dosage: 801 MILLIGRAM, ONCE A DAY
     Route: 065

REACTIONS (21)
  - Drug-induced liver injury [Fatal]
  - Acute hepatic failure [Fatal]
  - Blood bilirubin increased [Fatal]
  - Jaundice [Fatal]
  - Pruritus [Fatal]
  - Fatigue [Fatal]
  - Nausea [Fatal]
  - Aspartate aminotransferase increased [Fatal]
  - Gamma-glutamyltransferase increased [Fatal]
  - Liver injury [Fatal]
  - Alanine aminotransferase increased [Fatal]
  - Escherichia infection [Fatal]
  - Lactic acidosis [Fatal]
  - Sepsis [Fatal]
  - Multiple organ dysfunction syndrome [Fatal]
  - Drug interaction [Fatal]
  - Escherichia sepsis [Fatal]
  - Photophobia [Unknown]
  - Autoimmune hepatitis [Unknown]
  - Condition aggravated [Unknown]
  - Photosensitivity reaction [Unknown]
